FAERS Safety Report 13741049 (Version 1)
Quarter: 2017Q3

REPORT INFORMATION
  Report Type: Spontaneous
  Country: US (occurrence: US)
  Receive Date: 20170710
  Receipt Date: 20170710
  Transmission Date: 20171127
  Serious: Yes (Hospitalization)
  Sender: FDA-Public Use
  Company Number: None

PATIENT
  Age: 72 Year
  Sex: Male

DRUGS (2)
  1. XALKORI [Suspect]
     Active Substance: CRIZOTINIB
     Indication: LUNG NEOPLASM MALIGNANT
     Route: 048
     Dates: start: 20120525
  2. LYRICA [Concomitant]
     Active Substance: PREGABALIN

REACTIONS (2)
  - Malignant melanoma [None]
  - Skin neoplasm excision [None]

NARRATIVE: CASE EVENT DATE: 20170629
